FAERS Safety Report 18810105 (Version 2)
Quarter: 2021Q1

REPORT INFORMATION
  Report Type: Spontaneous
  Country: JP (occurrence: JP)
  Receive Date: 20210129
  Receipt Date: 20210208
  Transmission Date: 20210419
  Serious: Yes (Death)
  Sender: FDA-Public Use
  Company Number: JP-CELGENEUS-JPN-20210106588

PATIENT
  Age: 5 Decade
  Sex: Female

DRUGS (3)
  1. ABRAXANE [Suspect]
     Active Substance: PACLITAXEL
     Indication: SMALL INTESTINE CARCINOMA METASTATIC
     Route: 041
  2. ABRAXANE [Suspect]
     Active Substance: PACLITAXEL
     Indication: OFF LABEL USE
  3. CYRAMZA [Concomitant]
     Active Substance: RAMUCIRUMAB
     Indication: SMALL INTESTINE CARCINOMA METASTATIC
     Route: 041

REACTIONS (3)
  - Gastrointestinal perforation [Fatal]
  - Peritonitis [Fatal]
  - Septic shock [Fatal]
